FAERS Safety Report 10253048 (Version 1)
Quarter: 2014Q2

REPORT INFORMATION
  Report Type: Spontaneous
  Country: US (occurrence: US)
  Receive Date: 20140623
  Receipt Date: 20140623
  Transmission Date: 20141212
  Serious: Yes (Hospitalization, Other)
  Sender: FDA-Public Use
  Company Number: US-ELI_LILLY_AND_COMPANY-US201406005178

PATIENT
  Sex: Female

DRUGS (15)
  1. CYMBALTA [Suspect]
     Indication: FIBROMYALGIA
     Dosage: 120 MG, UNKNOWN
     Route: 065
     Dates: start: 2006
  2. INDERAL [Concomitant]
     Indication: BLOOD PRESSURE
     Dosage: 120 MG, QD
  3. ULTRAM [Concomitant]
     Dosage: 50 MG, QD
  4. CELEXA [Concomitant]
     Dosage: 40 MG, QD
  5. DIAZEPAM [Concomitant]
     Indication: SLEEP DISORDER
  6. NORCO [Concomitant]
     Indication: PAIN
     Dosage: UNK, PRN
  7. ADDERALL [Concomitant]
     Indication: FATIGUE
     Dosage: 30 MG, BID
  8. DILAUDID [Concomitant]
     Indication: MIGRAINE
     Dosage: 2 MG, PRN
     Route: 030
  9. PHENERGAN [Concomitant]
     Indication: MIGRAINE
     Dosage: 25 MG, PRN
     Route: 030
  10. TORADOL [Concomitant]
     Indication: MIGRAINE
     Dosage: 30 MG, PRN
     Route: 030
  11. MULTIVITAMIN [Concomitant]
  12. CALCIUM 500+D3 [Concomitant]
     Dosage: 500 MG, BID
  13. MAGNESIUM [Concomitant]
     Dosage: 500 MG, QD
  14. FISH OIL [Concomitant]
  15. BIOTIN [Concomitant]
     Dosage: 1000 UG, UNK

REACTIONS (4)
  - Migraine [Unknown]
  - Dermatitis bullous [Not Recovered/Not Resolved]
  - Stomatitis [Unknown]
  - Peripheral swelling [Unknown]
